FAERS Safety Report 9511898 (Version 1)
Quarter: 2013Q3

REPORT INFORMATION
  Report Type: Spontaneous
  Country: AU (occurrence: AU)
  Receive Date: 20130910
  Receipt Date: 20130910
  Transmission Date: 20140515
  Serious: Yes (Hospitalization)
  Sender: FDA-Public Use
  Company Number: AU-PERRIGO-13AU009057

PATIENT
  Age: 44 Year
  Sex: Male

DRUGS (11)
  1. IBUPROFEN RX 400 MG 373 [Suspect]
     Indication: PAIN
     Dosage: 2400-3200 MG IN 24 HOURS
     Route: 048
  2. IBUPROFEN RX 400 MG 373 [Suspect]
     Indication: COUGH
     Dosage: UNKNOWN, PRN
     Route: 048
  3. IBUPROFEN RX 400 MG 373 [Suspect]
     Indication: PYREXIA
  4. IBUPROFEN RX 400 MG 373 [Suspect]
     Indication: NIGHT SWEATS
  5. IBUPROFEN RX 400 MG 373 [Suspect]
     Indication: LYMPHADENOPATHY
  6. IBUPROFEN RX 400 MG 373 [Suspect]
     Indication: ASTHENIA
  7. IBUPROFEN RX 400 MG 373 [Suspect]
     Indication: MOUTH ULCERATION
  8. ROSUVASTATIN [Concomitant]
     Indication: HYPERCHOLESTEROLAEMIA
     Dosage: 10 MG, QHS
     Route: 065
  9. FISH OIL [Concomitant]
     Indication: PRODUCT USED FOR UNKNOWN INDICATION
     Dosage: UNK
     Route: 065
  10. ASCORBIC ACID [Concomitant]
     Indication: PRODUCT USED FOR UNKNOWN INDICATION
     Dosage: UNK
     Route: 065
  11. MULTIVITAMIN [Concomitant]
     Indication: PRODUCT USED FOR UNKNOWN INDICATION
     Dosage: UNK
     Route: 065

REACTIONS (8)
  - Myeloid maturation arrest [Recovered/Resolved]
  - Neutropenia [Recovered/Resolved]
  - Pyrexia [Unknown]
  - Cough [Unknown]
  - Lymphadenopathy [Unknown]
  - Mouth ulceration [Unknown]
  - Night sweats [Unknown]
  - Asthenia [Unknown]
